FAERS Safety Report 7528053-2 (Version None)
Quarter: 2011Q2

REPORT INFORMATION
  Report Type: 
  Country: None (occurrence: None)
  Receive Date: 20110607
  Receipt Date: 20110530
  Transmission Date: 20111010
  Serious: Yes (Hospitalization, Other)
  Sender: FDA-Public Use
  Company Number: JP-BRISTOL-MYERS SQUIBB COMPANY-15727555

PATIENT
  Sex: Female

DRUGS (6)
  1. CEPHADOL [Concomitant]
     Dosage: TABLET
  2. ABILIFY [Suspect]
     Dosage: 6MG STRENGTH
     Route: 048
     Dates: start: 20110404, end: 20110418
  3. LANSOPRAZOLE [Concomitant]
     Dosage: TABLET
  4. SUNRYTHM [Concomitant]
     Dosage: CAPSULE
  5. EPLERENONE [Concomitant]
     Dosage: TABLET
  6. BONALON [Concomitant]
     Dosage: TABLET

REACTIONS (3)
  - ANAEMIA [None]
  - FALL [None]
  - FRACTURE [None]
